FAERS Safety Report 10398465 (Version 1)
Quarter: 2014Q3

REPORT INFORMATION
  Report Type: Spontaneous
  Country: JP (occurrence: JP)
  Receive Date: 20140821
  Receipt Date: 20140821
  Transmission Date: 20150326
  Serious: Yes (Hospitalization)
  Sender: FDA-Public Use
  Company Number: PHHY2014JP103355

PATIENT
  Age: 51 Year
  Sex: Male

DRUGS (1)
  1. ACETYLSALICYLIC ACID [Suspect]
     Active Substance: ASPIRIN
     Indication: CHEST PAIN
     Dosage: 100 MG, UNK

REACTIONS (13)
  - Blood creatine phosphokinase MB increased [Unknown]
  - Electrocardiogram ST segment elevation [Recovered/Resolved]
  - Dyspnoea [Recovering/Resolving]
  - Drug hypersensitivity [Unknown]
  - Aspirin-exacerbated respiratory disease [Recovering/Resolving]
  - Acute respiratory failure [Unknown]
  - Ventricular hypokinesia [Unknown]
  - Condition aggravated [Unknown]
  - Wheezing [Recovering/Resolving]
  - Blood creatine phosphokinase increased [Unknown]
  - Kounis syndrome [Unknown]
  - Arteriospasm coronary [Unknown]
  - Chest discomfort [Recovering/Resolving]
